FAERS Safety Report 24443739 (Version 2)
Quarter: 2024Q4

REPORT INFORMATION
  Report Type: Report from Study
  Country: US (occurrence: US)
  Receive Date: 20241016
  Receipt Date: 20241017
  Transmission Date: 20250114
  Serious: No
  Sender: ROCHE
  Company Number: US-ROCHE-2001510

PATIENT
  Age: 42 Year
  Sex: Female

DRUGS (17)
  1. RITUXAN [Suspect]
     Active Substance: RITUXIMAB
     Indication: Multiple sclerosis
     Dosage: INFUSE 1000MG INTRAVENOUSLY ON DAY(S) 1 AND DAY(S) 15 REPEAT EVERY 4 MONTH(S), DATE OF TREATMENT- 06
     Route: 042
     Dates: start: 20200807
  2. RITUXAN [Suspect]
     Active Substance: RITUXIMAB
     Dosage: 500 MG SINGLE-USE VIAL
     Route: 042
  3. AMPHETAMINE;DEXTROAMPHETAMINE [Concomitant]
     Dosage: TAKE 1 TAB TWICE DAILY
     Route: 048
     Dates: start: 20151027
  4. BACLOFEN [Concomitant]
     Active Substance: BACLOFEN
     Dosage: TAKE 1 TAB BY MOUTH 3 TIMES A DAY AS NEEDED
     Route: 048
     Dates: start: 20140828
  5. CARBAMAZEPINE [Concomitant]
     Active Substance: CARBAMAZEPINE
     Dosage: TAKE 1 TAB 3 TIMES A DAILY
     Route: 048
     Dates: start: 20210208
  6. CYANOCOBALAMIN [Concomitant]
     Active Substance: CYANOCOBALAMIN
     Dosage: INJECT 1 ML INTRAMUSCULARLY DAILY WEEKLY
     Route: 030
     Dates: start: 20210430
  7. FLUOXETINE HYDROCHLORIDE [Concomitant]
     Active Substance: FLUOXETINE HYDROCHLORIDE
     Dosage: TAKE 1 CAPSULE BY MOUTH EVERY DAY
     Route: 048
     Dates: start: 20220421
  8. GABAPENTIN [Concomitant]
     Active Substance: GABAPENTIN
     Dosage: TAKE 3 CAPSULES BY MOUTH 4 TIMES A DAY
     Route: 048
     Dates: start: 20220206
  9. HYDROCODONE [Concomitant]
     Active Substance: HYDROCODONE
     Dosage: TAKE 1 TAB TWICE DAILY
     Route: 048
     Dates: start: 20220517
  10. LEVETIRACETAM [Concomitant]
     Active Substance: LEVETIRACETAM
     Dosage: TAKE 1 TAB BY MOUTH TWICE A DAILY
     Route: 048
     Dates: start: 20220725
  11. OMEPRAZOLE [Concomitant]
     Active Substance: OMEPRAZOLE
     Dosage: TAKE 1 TAB BY MOUTH TWICE A DAY
     Route: 048
     Dates: start: 20140828
  12. ONDANSETRON HYDROCHLORIDE [Concomitant]
     Active Substance: ONDANSETRON HYDROCHLORIDE
     Dosage: TAKE 1 TAB BY MOUTH EVERY 8 HOURS
     Route: 048
     Dates: start: 20161010
  13. PROMETHAZINE HYDROCHLORIDE [Concomitant]
     Active Substance: PROMETHAZINE HYDROCHLORIDE
     Dosage: TAKE 1 TABLET BY MOUTH EVERY DAY AT BEDTIME
     Route: 048
     Dates: start: 20150507
  14. TEMAZEPAM [Concomitant]
     Active Substance: TEMAZEPAM
     Dosage: TAKE 1 CAPSULE BY MOUTH TWICE A DAY AT BEDTIME AS NEEDED
     Route: 048
     Dates: start: 20190205
  15. TOPIRAMATE [Concomitant]
     Active Substance: TOPIRAMATE
     Dosage: TAKE 3 TABLET BY MOUTH TWICE A DAY
     Route: 048
     Dates: start: 20170214
  16. TRAZODONE HCL [Concomitant]
     Active Substance: TRAZODONE HYDROCHLORIDE
     Dosage: TAKE 1 TO 2 TABLETS BY MOUTH EVERY DAY AT BEDTIME
     Route: 048
     Dates: start: 20210829
  17. VENLAFAXINE HCL [Concomitant]
     Active Substance: VENLAFAXINE HYDROCHLORIDE
     Dosage: TAKE 1 CAPSULE BY MOUTH EVERY DAY
     Route: 048
     Dates: start: 20171116

REACTIONS (2)
  - Off label use [Unknown]
  - No adverse event [Unknown]
